FAERS Safety Report 25012331 (Version 1)
Quarter: 2025Q1

REPORT INFORMATION
  Report Type: Spontaneous
  Country: IL (occurrence: IL)
  Receive Date: 20250226
  Receipt Date: 20250226
  Transmission Date: 20250409
  Serious: Yes (Hospitalization)
  Sender: MACLEODS
  Company Number: IL-MLMSERVICE-20250212-PI397678-00057-2

PATIENT

DRUGS (17)
  1. ATORVASTATIN [Suspect]
     Active Substance: ATORVASTATIN
     Indication: Product used for unknown indication
     Route: 065
     Dates: end: 2022
  2. ZOLEDRONIC ACID [Concomitant]
     Active Substance: ZOLEDRONIC ACID
     Route: 065
     Dates: start: 2020, end: 2022
  3. ZOLEDRONIC ACID [Concomitant]
     Active Substance: ZOLEDRONIC ACID
  4. ZOLEDRONIC ACID [Concomitant]
     Active Substance: ZOLEDRONIC ACID
  5. ZOLEDRONIC ACID [Concomitant]
     Active Substance: ZOLEDRONIC ACID
  6. ZOLEDRONIC ACID [Concomitant]
     Active Substance: ZOLEDRONIC ACID
  7. ZOLEDRONIC ACID [Concomitant]
     Active Substance: ZOLEDRONIC ACID
  8. EVEROLIMUS [Concomitant]
     Active Substance: EVEROLIMUS
     Route: 065
     Dates: start: 202206, end: 2022
  9. EVEROLIMUS [Concomitant]
     Active Substance: EVEROLIMUS
     Indication: Disease progression
  10. EVEROLIMUS [Concomitant]
     Active Substance: EVEROLIMUS
  11. EVEROLIMUS [Concomitant]
     Active Substance: EVEROLIMUS
  12. EXEMESTANE [Concomitant]
     Active Substance: EXEMESTANE
     Route: 065
     Dates: end: 2022
  13. EXEMESTANE [Concomitant]
     Active Substance: EXEMESTANE
  14. EXEMESTANE [Concomitant]
     Active Substance: EXEMESTANE
  15. HYDROXYCHLOROQUINE [Concomitant]
     Active Substance: HYDROXYCHLOROQUINE
     Indication: Product used for unknown indication
     Route: 065
  16. DOXAZOSIN [Concomitant]
     Active Substance: DOXAZOSIN MESYLATE
     Indication: Product used for unknown indication
     Route: 065
  17. HYDROCHLOROTHIAZIDE [Concomitant]
     Active Substance: HYDROCHLOROTHIAZIDE
     Indication: Product used for unknown indication
     Route: 065

REACTIONS (2)
  - Blood creatine phosphokinase increased [Recovered/Resolved]
  - Drug level increased [Unknown]

NARRATIVE: CASE EVENT DATE: 20220101
